FAERS Safety Report 6670351-9 (Version None)
Quarter: 2010Q2

REPORT INFORMATION
  Report Type: 
  Country: None (occurrence: None)
  Receive Date: 20100405
  Receipt Date: 20100322
  Transmission Date: 20101027
  Serious: Yes (Other)
  Sender: FDA-Public Use
  Company Number: JPI-P-010047

PATIENT
  Age: 56 Year
  Sex: Female

DRUGS (6)
  1. XYREM [Suspect]
     Indication: INSOMNIA
     Dosage: 4.5 GM (2.25 GM, 2 IN 1 D), ORAL, 9 GM (4.5 GM, 2 IN 1 D), ORAL
     Route: 048
     Dates: start: 20070125
  2. AMITRIPTYLINE [Concomitant]
  3. QUETIAPINE FUMARATE [Concomitant]
  4. PREGABALIN [Concomitant]
  5. DESVENLAFAXINE [Concomitant]
  6. NAPROXEN [Concomitant]

REACTIONS (1)
  - OSTEONECROSIS [None]
